FAERS Safety Report 10199180 (Version 2)
Quarter: 2014Q2

REPORT INFORMATION
  Report Type: Spontaneous
  Country: BR (occurrence: BR)
  Receive Date: 20140527
  Receipt Date: 20140527
  Transmission Date: 20141212
  Serious: Yes (Other)
  Sender: FDA-Public Use
  Company Number: BR-SA-2013SA095537

PATIENT
  Sex: Female
  Weight: 54 kg

DRUGS (3)
  1. ENOXAPARIN SODIUM [Suspect]
     Indication: ANTICOAGULANT THERAPY
     Dosage: ROUTE: INJECT INTO ABDOMEN MUSCLES
     Dates: start: 201307
  2. ENOXAPARIN SODIUM [Suspect]
     Route: 065
  3. SYNTHROID [Concomitant]
     Indication: HYPOTHYROIDISM
     Dosage: DRUG: 175 MCG
     Route: 048
     Dates: start: 2008

REACTIONS (2)
  - Premature rupture of membranes [Unknown]
  - Exposure during pregnancy [Unknown]
